FAERS Safety Report 6474186-1 (Version None)
Quarter: 2009Q4

REPORT INFORMATION
  Report Type: 
  Country: None (occurrence: None)
  Receive Date: 20091204
  Receipt Date: 20091124
  Transmission Date: 20100525
  Serious: Yes (Other)
  Sender: FDA-Public Use
  Company Number: JP-PFIZER INC-2009277470

PATIENT
  Age: 23 Year
  Sex: Male
  Weight: 50 kg

DRUGS (10)
  1. ZITHROMAC SR [Suspect]
     Indication: BRONCHITIS
     Dosage: 2 G, SINGLE
     Route: 048
     Dates: start: 20090928, end: 20090928
  2. RESPLEN [Concomitant]
     Indication: COUGH
     Dosage: UNK
     Route: 048
     Dates: start: 20090928, end: 20091002
  3. VENTOLIN [Concomitant]
     Indication: COUGH
     Dosage: UNK
     Route: 048
     Dates: start: 20090928, end: 20091002
  4. IBRUPROFEN [Concomitant]
     Dosage: UNK
     Route: 048
     Dates: start: 20090928, end: 20091002
  5. ENTERONON R [Concomitant]
     Dosage: UNK
     Route: 048
     Dates: start: 20090928, end: 20091002
  6. MARZULENE S [Concomitant]
     Indication: GASTRITIS
     Dosage: UNK
     Route: 048
     Dates: start: 20090928, end: 20091002
  7. PLOKON [Concomitant]
     Indication: RHINITIS
     Dosage: UNK
     Route: 048
     Dates: start: 20090928, end: 20091002
  8. ASVERIN [Concomitant]
     Indication: COUGH
     Dosage: UNK
     Route: 048
     Dates: start: 20090928, end: 20091002
  9. BISOLVON [Concomitant]
     Dosage: UNK
     Route: 048
     Dates: start: 20090928, end: 20091002
  10. FAMOTIDINE [Concomitant]
     Indication: GASTRITIS
     Dosage: UNK
     Route: 048
     Dates: start: 20090928, end: 20091002

REACTIONS (1)
  - ENTEROCOLITIS HAEMORRHAGIC [None]
